FAERS Safety Report 15254671 (Version 1)
Quarter: 2018Q3

REPORT INFORMATION
  Report Type: Spontaneous
  Country: US (occurrence: US)
  Receive Date: 20180717
  Receipt Date: 20180717
  Transmission Date: 20181010
  Serious: No
  Sender: FDA-Public Use
  Company Number: None

PATIENT
  Age: 58 Year
  Sex: Female
  Weight: 69.3 kg

DRUGS (22)
  1. EXCEDRIN [Concomitant]
     Active Substance: ACETAMINOPHEN\ASPIRIN\CAFFEINE
  2. MOTRIN [Concomitant]
     Active Substance: IBUPROFEN
  3. AVASTIN [Concomitant]
     Active Substance: BEVACIZUMAB
  4. ULTRAM [Concomitant]
     Active Substance: TRAMADOL HYDROCHLORIDE
  5. POTASSIUM CHLORIDE. [Concomitant]
     Active Substance: POTASSIUM CHLORIDE
  6. FIORICET [Concomitant]
     Active Substance: ACETAMINOPHEN\BUTALBITAL\CAFFEINE
  7. CATAFLAM [Concomitant]
     Active Substance: DICLOFENAC POTASSIUM
  8. LEXAPRO [Concomitant]
     Active Substance: ESCITALOPRAM OXALATE
  9. ZESTRIL [Concomitant]
     Active Substance: LISINOPRIL
  10. FLONASE [Concomitant]
     Active Substance: FLUTICASONE PROPIONATE
  11. SYNTHROID [Concomitant]
     Active Substance: LEVOTHYROXINE SODIUM
  12. DEXAMETHASONE. [Concomitant]
     Active Substance: DEXAMETHASONE
  13. OSCAL 500/200 D?3 [Concomitant]
  14. COZAAR [Concomitant]
     Active Substance: LOSARTAN POTASSIUM
  15. IBRANCE [Suspect]
     Active Substance: PALBOCICLIB
     Indication: BREAST CANCER
     Route: 048
     Dates: start: 20160426
  16. VENTOLIN [Concomitant]
     Active Substance: ALBUTEROL SULFATE
  17. AROMASIN [Concomitant]
     Active Substance: EXEMESTANE
  18. COENZYME Q?10 [Concomitant]
  19. LASIX [Concomitant]
     Active Substance: FUROSEMIDE
  20. IMITREX [Concomitant]
     Active Substance: SUMATRIPTAN SUCCINATE
  21. TOPAMAX [Concomitant]
     Active Substance: TOPIRAMATE
  22. TUSSIONEX PENNKINETIC [Concomitant]
     Active Substance: CHLORPHENIRAMINE\HYDROCODONE

REACTIONS (3)
  - Metastases to bone [None]
  - Disease progression [None]
  - Metastases to liver [None]
